FAERS Safety Report 17075828 (Version 5)
Quarter: 2020Q2

REPORT INFORMATION
  Report Type: Spontaneous
  Country: KR (occurrence: KR)
  Receive Date: 20191126
  Receipt Date: 20200410
  Transmission Date: 20200713
  Serious: Yes (Death, Other)
  Sender: FDA-Public Use
  Company Number: KR-PFIZER INC-2019506672

PATIENT
  Age: 82 Year
  Sex: Male
  Weight: 63 kg

DRUGS (17)
  1. GINEXIN-F [Concomitant]
     Dosage: UNK
     Dates: start: 20190623
  2. TRIDOL [Concomitant]
     Active Substance: TRAMADOL HYDROCHLORIDE
     Dosage: 50 MG/ML, 3 TIMES AS NEEDED
     Route: 042
     Dates: start: 20190621, end: 20190621
  3. FAMVICS [Concomitant]
     Dosage: 3 DF (1 DF=250 MG), EVERY 8 HRS
     Dates: start: 20190617
  4. FAMVICS [Concomitant]
     Dosage: ONCE DAILY
     Dates: start: 20190621
  5. PARAMACET [Concomitant]
     Active Substance: ACETAMINOPHEN\TRAMADOL
     Dosage: ONCE DAILY
     Dates: start: 20190621
  6. SMOFKABIVEN [Concomitant]
     Active Substance: AMINO ACIDS\DEXTROSE\ELECTROLYTES NOS\SOYBEAN OIL
     Dosage: ONCE DAILY
     Dates: start: 20190621
  7. MUCOSTA [Concomitant]
     Active Substance: REBAMIPIDE
     Dosage: ONCE DAILY
     Dates: start: 20190621
  8. FRAGMIN [Interacting]
     Active Substance: DALTEPARIN SODIUM
     Indication: ANTICOAGULANT THERAPY
     Dosage: 7500 IU, SINGLE
     Route: 058
     Dates: start: 20190623, end: 20190623
  9. ORODIPINE [Concomitant]
     Active Substance: AMLODIPINE OROTATE
     Dosage: UNK
     Dates: start: 20190623
  10. MUCOSTA [Concomitant]
     Active Substance: REBAMIPIDE
     Dosage: 3 DF (1 DF=100 MG), 3X/DAY
     Dates: start: 20190617
  11. CELEBREX [Interacting]
     Active Substance: CELECOXIB
     Dosage: UNK, 2X/DAY
     Dates: start: 20190622, end: 20190622
  12. FRAGMIN [Interacting]
     Active Substance: DALTEPARIN SODIUM
     Indication: THROMBOSIS
  13. TRIDOL [Concomitant]
     Active Substance: TRAMADOL HYDROCHLORIDE
     Dosage: 50 MG/ML 4 TIMES AS NEEDED
     Route: 042
     Dates: start: 20190622, end: 20190622
  14. CELEBREX [Suspect]
     Active Substance: CELECOXIB
     Dosage: 100 MG(HALF OF 200MG), 2X/DAY
     Route: 048
     Dates: start: 20190617
  15. CELEBREX [Interacting]
     Active Substance: CELECOXIB
     Dosage: UNK
     Dates: start: 20190623, end: 20190623
  16. TRIDOL [Concomitant]
     Active Substance: TRAMADOL HYDROCHLORIDE
     Dosage: 50 MG/ML, 3 TIMES AS NEEDED
     Route: 042
     Dates: start: 20190623, end: 20190623
  17. CELEBREX [Interacting]
     Active Substance: CELECOXIB
     Dosage: UNK, 1X/DAY
     Dates: start: 20190621, end: 20190621

REACTIONS (9)
  - Cardiopulmonary failure [Fatal]
  - Malignant neoplasm progression [Unknown]
  - Heart rate increased [Unknown]
  - Ventricular fibrillation [Unknown]
  - Haemoptysis [Unknown]
  - Thrombosis [Fatal]
  - Blood pressure increased [Unknown]
  - Pulmonary embolism [Fatal]
  - Drug interaction [Unknown]

NARRATIVE: CASE EVENT DATE: 20190623
